FAERS Safety Report 7077523-2 (Version None)
Quarter: 2010Q4

REPORT INFORMATION
  Report Type: 
  Country: None (occurrence: None)
  Receive Date: 20101101
  Receipt Date: 20101021
  Transmission Date: 20110411
  Serious: Yes (Hospitalization)
  Sender: FDA-Public Use
  Company Number: IR-US-EMD SERONO, INC.-7022734

PATIENT
  Age: 39 Year
  Sex: Female

DRUGS (2)
  1. HUMAN CHORIONIC GONADOTROPHIN [Suspect]
     Indication: OVULATION INDUCTION
     Route: 030
  2. GONAL-F [Suspect]
     Indication: OVULATION INDUCTION
     Dosage: 3 AMPOULES PER DAY

REACTIONS (1)
  - CAROTID ARTERY THROMBOSIS [None]
